FAERS Safety Report 4662513-7 (Version None)
Quarter: 2005Q2

REPORT INFORMATION
  Report Type: 
  Country: None (occurrence: None)
  Receive Date: 20050513
  Receipt Date: 20050513
  Transmission Date: 20051028
  Serious: Yes (Life-Threatening)
  Sender: FDA-Public Use
  Company Number: None

PATIENT
  Sex: Male
  Weight: 105 kg

DRUGS (1)
  1. INTEGRILIN [Suspect]
     Dosage: 16.8ML/HR     INTRAVENOU
     Route: 042
     Dates: start: 20050106, end: 20050107

REACTIONS (1)
  - THROMBOCYTOPENIA [None]
